FAERS Safety Report 17173298 (Version 1)
Quarter: 2019Q4

REPORT INFORMATION
  Report Type: Spontaneous
  Country: US (occurrence: US)
  Receive Date: 20191126
  Receipt Date: 20191126
  Transmission Date: 20200122
  Serious: No
  Sender: FDA-Public Use
  Company Number: None

PATIENT
  Age: 67 Year
  Sex: Female

DRUGS (23)
  1. TEMAZEPAM. [Concomitant]
     Active Substance: TEMAZEPAM
  2. VITAMIN D3 [Concomitant]
     Active Substance: CHOLECALCIFEROL
  3. BACLOFEN. [Concomitant]
     Active Substance: BACLOFEN
  4. SIMVASTATIN. [Concomitant]
     Active Substance: SIMVASTATIN
  5. AVONEX [Concomitant]
     Active Substance: INTERFERON BETA-1A
  6. FISH OIL [Concomitant]
     Active Substance: FISH OIL
  7. VITAMIN B COMPLEX [Concomitant]
     Active Substance: CYANOCOBALAMIN\DEXPANTHENOL\NIACINAMIDE\PYRIDOXINE HYDROCHLORIDE\RIBOFLAVIN 5^-PHOSPHATE SODIUM\THIAMINE HYDROCHLORIDE\VITAMIN B COMPLEX
  8. LISINOPRIL. [Concomitant]
     Active Substance: LISINOPRIL
  9. DILTIZEM HCL [Concomitant]
  10. GABAPENTIN. [Concomitant]
     Active Substance: GABAPENTIN
  11. MULTIVITAMIN [Concomitant]
     Active Substance: VITAMINS
  12. ASACOL [Concomitant]
     Active Substance: MESALAMINE
  13. DALFAMPRIDINE ER 10 MG AUROBINDO PHARMA [Suspect]
     Active Substance: DALFAMPRIDINE
     Indication: MULTIPLE SCLEROSIS
     Route: 048
  14. CALCIUM [Concomitant]
     Active Substance: CALCIUM
  15. HYDROCHLOROTHIAZIDE. [Concomitant]
     Active Substance: HYDROCHLOROTHIAZIDE
  16. EVISTA [Concomitant]
     Active Substance: RALOXIFENE HYDROCHLORIDE
  17. AZATHIOPRINE. [Concomitant]
     Active Substance: AZATHIOPRINE
  18. FLUOXETINE HCL [Concomitant]
     Active Substance: FLUOXETINE HYDROCHLORIDE
  19. LABETALOL HCL [Concomitant]
     Active Substance: LABETALOL HYDROCHLORIDE
  20. PROBIOTIC [Concomitant]
     Active Substance: PROBIOTICS NOS
  21. TIZANIDINE. [Concomitant]
     Active Substance: TIZANIDINE
  22. COMFORT PAC [Concomitant]
  23. OMEPRAZOLE. [Concomitant]
     Active Substance: OMEPRAZOLE

REACTIONS (3)
  - Altered state of consciousness [None]
  - Seizure [None]
  - Therapy change [None]
